FAERS Safety Report 4975469-4 (Version None)
Quarter: 2006Q2

REPORT INFORMATION
  Report Type: 
  Country: None (occurrence: None)
  Receive Date: 20060417
  Receipt Date: 20060417
  Transmission Date: 20061013
  Serious: Yes (Death)
  Sender: FDA-Public Use
  Company Number: None

PATIENT
  Sex: Female
  Weight: 52.9 kg

DRUGS (2)
  1. TAXOTERE [Suspect]
     Indication: UTERINE CANCER
     Dosage: 44 MG
     Dates: start: 20060306, end: 20060306
  2. GEMCITABINE [Suspect]
     Dosage: 735 MG
     Dates: start: 20060306, end: 20060306

REACTIONS (1)
  - REFUSAL OF TREATMENT BY PATIENT [None]
